FAERS Safety Report 5224069-X (Version None)
Quarter: 2007Q1

REPORT INFORMATION
  Report Type: 
  Country: None (occurrence: None)
  Receive Date: 20070130
  Receipt Date: 20070126
  Transmission Date: 20070707
  Serious: Yes (Disabling)
  Sender: FDA-Public Use
  Company Number: US-MERCK-0701USA03184

PATIENT
  Age: 47 Year
  Sex: Male
  Weight: 66 kg

DRUGS (5)
  1. CRIXIVAN [Suspect]
     Indication: HIV INFECTION
     Route: 048
     Dates: start: 19990101, end: 20061201
  2. NORVIR [Concomitant]
     Indication: HIV INFECTION
     Route: 048
     Dates: start: 19990101
  3. NORVIR [Concomitant]
     Route: 048
  4. VIRAMUNE [Concomitant]
     Indication: HIV INFECTION
     Route: 048
     Dates: start: 19990101, end: 20050101
  5. VIDEX EC [Concomitant]
     Indication: HIV INFECTION
     Route: 048
     Dates: start: 19990101, end: 20060101

REACTIONS (2)
  - EAR CONGESTION [None]
  - EAR DISCOMFORT [None]
